FAERS Safety Report 8480733-0 (Version None)
Quarter: 2012Q2

REPORT INFORMATION
  Report Type: 
  Country: None (occurrence: None)
  Receive Date: 20120625
  Receipt Date: 20120625
  Transmission Date: 20120825
  Serious: No
  Sender: FDA-Public Use
  Company Number: None

PATIENT
  Age: 53 Year
  Sex: Female

DRUGS (1)
  1. QUETIAPINE [Suspect]
     Indication: MAJOR DEPRESSION
     Dosage: 100 MG HS MARCH - MAY 2012

REACTIONS (3)
  - DEPRESSED MOOD [None]
  - CRYING [None]
  - INSOMNIA [None]
